FAERS Safety Report 4854816-8 (Version None)
Quarter: 2005Q4

REPORT INFORMATION
  Report Type: 
  Country: None (occurrence: None)
  Receive Date: 20051214
  Receipt Date: 20051214
  Transmission Date: 20060501
  Serious: Yes (Hospitalization)
  Sender: FDA-Public Use
  Company Number: None

PATIENT
  Age: 64 Year
  Sex: Female
  Weight: 46.2669 kg

DRUGS (2)
  1. TARCEVA [Suspect]
     Indication: PANCREATIC CARCINOMA
     Dosage: 150 MG PO QD
     Dates: start: 20040311
  2. XELODA [Suspect]
     Indication: PANCREATIC CARCINOMA
     Dosage: 500 MG/M2 PO Q 12 HRS
     Route: 048
     Dates: start: 20040311

REACTIONS (11)
  - ABDOMINAL PAIN LOWER [None]
  - BILE DUCT OBSTRUCTION [None]
  - CONFUSIONAL STATE [None]
  - CONSTIPATION [None]
  - DIARRHOEA [None]
  - DRUG TOXICITY [None]
  - GASTROINTESTINAL HAEMORRHAGE [None]
  - HAEMORRHOIDS [None]
  - INFECTION [None]
  - ORAL INTAKE REDUCED [None]
  - RECTAL HAEMORRHAGE [None]
